FAERS Safety Report 9391039 (Version 2)
Quarter: 2013Q3

REPORT INFORMATION
  Report Type: Spontaneous
  Country: GR (occurrence: None)
  Receive Date: 20130705
  Receipt Date: 20130717
  Transmission Date: 20140515
  Serious: Yes (Death, Hospitalization)
  Sender: FDA-Public Use
  Company Number: ENTC2013-0234

PATIENT
  Age: 72 Year
  Sex: Female

DRUGS (4)
  1. STALEVO (LEVODOPA, CARBIDOPA, ENTACAPONE) [Suspect]
     Indication: PARKINSON^S DISEASE
     Dosage: 1X200 MG + 3X150 MG PER DAY
  2. LYRICA [Concomitant]
  3. ANTIHYPERTENSIVES [Concomitant]
  4. ANTIINFLAMMATORY AGENTS [Concomitant]

REACTIONS (4)
  - Myocardial infarction [None]
  - Gait disturbance [None]
  - Localised oedema [None]
  - Oedema peripheral [None]
